FAERS Safety Report 19796113 (Version 1)
Quarter: 2021Q3

REPORT INFORMATION
  Report Type: Spontaneous
  Country: CH (occurrence: CH)
  Receive Date: 20210907
  Receipt Date: 20210907
  Transmission Date: 20211014
  Serious: Yes (Other)
  Sender: FDA-Public Use
  Company Number: CH-ASTRAZENECA-2021A709097

PATIENT
  Age: 901 Month
  Sex: Female

DRUGS (6)
  1. ATORVASTATIN PFIZER [Concomitant]
     Active Substance: ATORVASTATIN
     Route: 048
  2. TAGRISSO [Suspect]
     Active Substance: OSIMERTINIB
     Route: 048
     Dates: start: 20210406, end: 20210519
  3. LISINOPRIL MEPHA [Concomitant]
     Active Substance: LISINOPRIL
     Route: 048
  4. TAGRISSO [Suspect]
     Active Substance: OSIMERTINIB
     Route: 048
     Dates: start: 20210402, end: 20210405
  5. RELVAR ELLIPTA [Concomitant]
     Active Substance: FLUTICASONE FUROATE\VILANTEROL TRIFENATATE
     Route: 055
  6. SINGULAIR [Concomitant]
     Active Substance: MONTELUKAST SODIUM
     Route: 048

REACTIONS (5)
  - Lung infiltration [Recovered/Resolved]
  - Eosinophilia [Recovered/Resolved]
  - Diarrhoea [Recovered/Resolved]
  - Rash [Recovered/Resolved]
  - Cough [Recovered/Resolved]

NARRATIVE: CASE EVENT DATE: 202104
